FAERS Safety Report 6786185-0 (Version None)
Quarter: 2010Q2

REPORT INFORMATION
  Report Type: 
  Country: None (occurrence: None)
  Receive Date: 20100622
  Receipt Date: 20100622
  Transmission Date: 20101027
  Serious: Yes (Life-Threatening, Hospitalization, Other)
  Sender: FDA-Public Use
  Company Number: None

PATIENT
  Age: 66 Year
  Sex: Male
  Weight: 90.7194 kg

DRUGS (1)
  1. AMIODARONE HCL [Suspect]
     Indication: CARDIAC DISORDER
     Dosage: 400 MG DAILY
     Dates: start: 20100421, end: 20100618

REACTIONS (8)
  - ABDOMINAL PAIN UPPER [None]
  - CONVULSION [None]
  - DECREASED APPETITE [None]
  - LABELLED DRUG-DRUG INTERACTION MEDICATION ERROR [None]
  - MALAISE [None]
  - NAUSEA [None]
  - OVERDOSE [None]
  - VOMITING [None]
